FAERS Safety Report 9667679 (Version 1)
Quarter: 2013Q4

REPORT INFORMATION
  Report Type: Spontaneous
  Country: US (occurrence: US)
  Receive Date: 20131101
  Receipt Date: 20131101
  Transmission Date: 20140711
  Serious: Yes (Other)
  Sender: FDA-Public Use
  Company Number: US-ORACLE-2012S1000019

PATIENT
  Age: 32 Year
  Sex: Male

DRUGS (9)
  1. KRYSTEXXA INJECTION [Suspect]
     Indication: GOUT
     Route: 042
     Dates: start: 20120228, end: 20120228
  2. KRYSTEXXA INJECTION [Suspect]
     Indication: GOUT
     Route: 042
     Dates: start: 20120313, end: 20120313
  3. VICODIN [Concomitant]
     Indication: PRODUCT USED FOR UNKNOWN INDICATION
  4. PREDNISONE [Concomitant]
     Indication: PRODUCT USED FOR UNKNOWN INDICATION
     Dates: start: 20120214
  5. COLCRYS [Concomitant]
     Indication: GOUT
  6. ALEVE [Concomitant]
     Indication: PRODUCT USED FOR UNKNOWN INDICATION
  7. TYLENOL /00020001/ [Concomitant]
     Indication: PREMEDICATION
     Dates: start: 20120228
  8. CLARITIN /00917501/ [Concomitant]
     Indication: PREMEDICATION
     Dates: start: 20120228
  9. SOLUCORTEF [Suspect]
     Indication: PREMEDICATION
     Route: 042
     Dates: start: 20120228

REACTIONS (2)
  - Infusion related reaction [Recovered/Resolved]
  - Drug ineffective [Unknown]
